FAERS Safety Report 13027042 (Version 2)
Quarter: 2017Q1

REPORT INFORMATION
  Report Type: Spontaneous
  Country: DE (occurrence: DE)
  Receive Date: 20161214
  Receipt Date: 20170301
  Transmission Date: 20170428
  Serious: Yes (Other)
  Sender: FDA-Public Use
  Company Number: DE-JNJFOC-20161210028

PATIENT
  Age: 27 Year
  Sex: Female
  Weight: 57 kg

DRUGS (3)
  1. CALCIPOTRIENE AND BETAMETHASONE DIPROPIONATE [Concomitant]
     Active Substance: BETAMETHASONE DIPROPIONATE\CALCIPOTRIENE
     Route: 065
     Dates: start: 20161201
  2. STELARA [Suspect]
     Active Substance: USTEKINUMAB
     Indication: PSORIASIS
     Dosage: THE PATIENT RECEIVED 4 USTEKINUMAB INJECTIONS APPROXIMATELY
     Route: 058
     Dates: start: 20160319, end: 201607
  3. PREDNICARBATE. [Concomitant]
     Active Substance: PREDNICARBATE
     Route: 065
     Dates: start: 20160706

REACTIONS (1)
  - Sinusitis [Recovering/Resolving]

NARRATIVE: CASE EVENT DATE: 20161121
